FAERS Safety Report 10729158 (Version 1)
Quarter: 2015Q1

REPORT INFORMATION
  Report Type: Spontaneous
  Country: US (occurrence: None)
  Receive Date: 20150120
  Receipt Date: 20150120
  Transmission Date: 20150721
  Serious: Yes (Other)
  Sender: FDA-Public Use
  Company Number: None

PATIENT
  Age: 58 Year
  Sex: Female
  Weight: 44.45 kg

DRUGS (1)
  1. AVASTIN [Suspect]
     Active Substance: BEVACIZUMAB
     Indication: OVARIAN CANCER
     Dosage: 21 DAY CYCLE PORT
     Dates: start: 20140407, end: 20141224

REACTIONS (5)
  - Decreased appetite [None]
  - Drug ineffective [None]
  - Headache [None]
  - Exercise tolerance decreased [None]
  - Bedridden [None]

NARRATIVE: CASE EVENT DATE: 20140720
